FAERS Safety Report 5649510-X (Version None)
Quarter: 2008Q1

REPORT INFORMATION
  Report Type: 
  Country: None (occurrence: None)
  Receive Date: 20080303
  Receipt Date: 20080303
  Transmission Date: 20080703
  Serious: Yes (Other)
  Sender: FDA-Public Use
  Company Number: None

PATIENT
  Age: 43 Year
  Sex: Female
  Weight: 57.6068 kg

DRUGS (1)
  1. AMBIEN CR [Suspect]
     Indication: INSOMNIA
     Dosage: 1 DAILY ONCE DAILY
     Dates: start: 20080118, end: 20080227

REACTIONS (3)
  - DEPRESSION [None]
  - MYALGIA [None]
  - PARAESTHESIA [None]
